FAERS Safety Report 8439649-8 (Version None)
Quarter: 2012Q2

REPORT INFORMATION
  Report Type: 
  Country: None (occurrence: None)
  Receive Date: 20120615
  Receipt Date: 20120606
  Transmission Date: 20120825
  Serious: Yes (Life-Threatening, Hospitalization)
  Sender: FDA-Public Use
  Company Number: JP-SANOFI-AVENTIS-2010SA001835

PATIENT
  Age: 79 Year
  Sex: Female
  Weight: 60 kg

DRUGS (4)
  1. LANSOPRAZOLE [Concomitant]
     Route: 048
     Dates: start: 20091116, end: 20100131
  2. ENOXAPARIN SODIUM [Suspect]
     Indication: PROPHYLAXIS
     Dosage: EVERY 12 HOURS
     Route: 058
     Dates: start: 20091111, end: 20091119
  3. LOXONIN [Concomitant]
     Route: 048
     Dates: start: 20091116, end: 20091130
  4. MUCOSTA [Concomitant]
     Route: 048
     Dates: start: 20091116, end: 20091130

REACTIONS (5)
  - OEDEMA PERIPHERAL [None]
  - HEPARIN-INDUCED THROMBOCYTOPENIA [None]
  - PULMONARY EMBOLISM [None]
  - DISSEMINATED INTRAVASCULAR COAGULATION [None]
  - DEEP VEIN THROMBOSIS [None]
